FAERS Safety Report 5491105-5 (Version None)
Quarter: 2007Q4

REPORT INFORMATION
  Report Type: 
  Country: None (occurrence: None)
  Receive Date: 20071019
  Receipt Date: 20071010
  Transmission Date: 20080405
  Serious: Yes (Other)
  Sender: FDA-Public Use
  Company Number: US-PFIZER INC-2007061750

PATIENT
  Age: 54 Year

DRUGS (1)
  1. LIPITOR [Suspect]
     Dates: start: 20040101, end: 20070701

REACTIONS (7)
  - ARTHRALGIA [None]
  - ARTHROPATHY [None]
  - ASTHENIA [None]
  - JOINT INJURY [None]
  - MUSCLE INJURY [None]
  - MYALGIA [None]
  - PAIN IN EXTREMITY [None]
